FAERS Safety Report 23796978 (Version 1)
Quarter: 2024Q2

REPORT INFORMATION
  Report Type: Spontaneous
  Country: US (occurrence: US)
  Receive Date: 20240430
  Receipt Date: 20240430
  Transmission Date: 20240716
  Serious: Yes (Hospitalization)
  Sender: FDA-Public Use
  Company Number: US-BEH-2024171097

PATIENT
  Age: 81 Year
  Sex: Female

DRUGS (1)
  1. HUMATE-P [Suspect]
     Active Substance: HUMAN COAGULATION FACTOR VIII/VON WILLEBRAND FACTOR COMPLEX
     Indication: Von Willebrand^s disease
     Dosage: 2500 IU, QW
     Route: 042

REACTIONS (7)
  - Internal haemorrhage [Recovered/Resolved]
  - Blood test abnormal [Unknown]
  - Fall [Unknown]
  - Hip fracture [Unknown]
  - Internal haemorrhage [Unknown]
  - Blood test abnormal [Unknown]
  - Wound haemorrhage [Unknown]

NARRATIVE: CASE EVENT DATE: 20231201
